FAERS Safety Report 16781212 (Version 2)
Quarter: 2019Q3

REPORT INFORMATION
  Report Type: Spontaneous
  Country: CN (occurrence: CN)
  Receive Date: 20190906
  Receipt Date: 20190909
  Transmission Date: 20191005
  Serious: Yes (Life-Threatening, Other)
  Sender: FDA-Public Use
  Company Number: CN-BAYER-2019-159905

PATIENT
  Age: 40 Year
  Sex: Male

DRUGS (1)
  1. ULTRAVIST [Suspect]
     Active Substance: IOPROMIDE
     Indication: ANGIOCARDIOGRAM
     Dosage: 100 ML, ONCE, INJECTION
     Dates: start: 20190828, end: 20190828

REACTIONS (17)
  - Feeling cold [Recovering/Resolving]
  - Dizziness [Recovering/Resolving]
  - Anaphylactic shock [Recovering/Resolving]
  - Salivary hypersecretion [Recovering/Resolving]
  - Oral discharge [Recovering/Resolving]
  - Pyrexia [Recovering/Resolving]
  - Cold sweat [Recovering/Resolving]
  - Dysstasia [Recovering/Resolving]
  - Cyanosis [Recovering/Resolving]
  - Hyperhidrosis [Recovering/Resolving]
  - Stress [Recovering/Resolving]
  - Dyspnoea [Recovering/Resolving]
  - Syncope [Recovering/Resolving]
  - Nausea [None]
  - Vomiting [None]
  - Blood pressure decreased [Recovering/Resolving]
  - Amaurosis [Recovering/Resolving]

NARRATIVE: CASE EVENT DATE: 20190828
